FAERS Safety Report 14249059 (Version 2)
Quarter: 2018Q1

REPORT INFORMATION
  Report Type: Spontaneous
  Country: US (occurrence: US)
  Receive Date: 20171204
  Receipt Date: 20180105
  Transmission Date: 20180508
  Serious: Yes (Life-Threatening, Hospitalization, Disabling, Other)
  Sender: FDA-Public Use
  Company Number: US-009507513-1711USA013509

PATIENT
  Age: 68 Year
  Sex: Female
  Weight: 59.86 kg

DRUGS (10)
  1. METFORMIN [Concomitant]
     Active Substance: METFORMIN HYDROCHLORIDE
     Dosage: 500 MG, BID
  2. JANUVIA [Suspect]
     Active Substance: SITAGLIPTIN PHOSPHATE
     Indication: TYPE 2 DIABETES MELLITUS
     Dosage: 50 MG, QD
     Route: 048
     Dates: start: 20110607
  3. HYDROCHLOROTHIAZIDE. [Concomitant]
     Active Substance: HYDROCHLOROTHIAZIDE
     Dosage: UNK, QD
  4. ZOCOR [Concomitant]
     Active Substance: SIMVASTATIN
     Dosage: 80 MG, QD
  5. ASPIRIN. [Concomitant]
     Active Substance: ASPIRIN
     Dosage: 325 MG, QD
  6. JANUVIA [Suspect]
     Active Substance: SITAGLIPTIN PHOSPHATE
     Dosage: 100 MG, QD
     Route: 048
     Dates: end: 20171027
  7. XALATAN [Concomitant]
     Active Substance: LATANOPROST
     Dosage: 2 DF, QD  (ONE DROP IN EACH EYE DAILY)
  8. SYNTHROID [Concomitant]
     Active Substance: LEVOTHYROXINE SODIUM
     Dosage: 25 MICROGRAM, QD
  9. IRBESARTAN. [Concomitant]
     Active Substance: IRBESARTAN
     Dosage: 150 MG, QD
  10. SOTALOL. [Concomitant]
     Active Substance: SOTALOL
     Dosage: 120 MG, BID

REACTIONS (6)
  - Renal failure [Recovering/Resolving]
  - Renal arteriosclerosis [Unknown]
  - Tubulointerstitial nephritis [Recovering/Resolving]
  - Kidney fibrosis [Unknown]
  - Renal tubular atrophy [Unknown]
  - Glomerulosclerosis [Unknown]

NARRATIVE: CASE EVENT DATE: 2017
